FAERS Safety Report 14322843 (Version 2)
Quarter: 2018Q1

REPORT INFORMATION
  Report Type: Report from Study
  Country: JP (occurrence: JP)
  Receive Date: 20171226
  Receipt Date: 20180111
  Transmission Date: 20180509
  Serious: Yes (Hospitalization)
  Sender: FDA-Public Use
  Company Number: JP-ROCHE-2045119

PATIENT
  Age: 10 Year
  Sex: Female
  Weight: 33.8 kg

DRUGS (6)
  1. INTAL [Concomitant]
     Active Substance: CROMOLYN SODIUM
     Indication: PRODUCT USED FOR UNKNOWN INDICATION
     Dosage: UNK
     Route: 065
  2. ADOAIR [Concomitant]
     Active Substance: FLUTICASONE PROPIONATE\SALMETEROL XINAFOATE
     Indication: ASTHMA
     Dosage: 250 UG, BID
     Route: 055
  3. THEO-DUR [Concomitant]
     Active Substance: THEOPHYLLINE ANHYDROUS
     Indication: ASTHMA
     Dosage: 125 MG, BID
     Route: 048
     Dates: start: 20170228
  4. XOLAIR [Suspect]
     Active Substance: OMALIZUMAB
     Indication: INFANTILE ASTHMA
     Dosage: UNK
     Route: 058
     Dates: start: 20161217, end: 20161217
  5. SINGULAIR [Concomitant]
     Active Substance: MONTELUKAST SODIUM
     Indication: ASTHMA
     Dosage: 5 MG, QD
     Route: 048
  6. MEPTIN [Concomitant]
     Active Substance: PROCATEROL HYDROCHLORIDE
     Indication: PRODUCT USED FOR UNKNOWN INDICATION
     Dosage: UNK
     Route: 065

REACTIONS (6)
  - Induration [Unknown]
  - Asthma [Unknown]
  - Feeling hot [Unknown]
  - Pain [Unknown]
  - Urticaria [Recovered/Resolved]
  - Hyperhidrosis [Unknown]
